FAERS Safety Report 12921347 (Version 3)
Quarter: 2017Q2

REPORT INFORMATION
  Report Type: Report from Study
  Country: None (occurrence: US)
  Receive Date: 20161108
  Receipt Date: 20170622
  Transmission Date: 20170830
  Serious: Yes (Hospitalization)
  Sender: FDA-Public Use
  Company Number: US-ABBVIE-16K-163-1771338-00

PATIENT
  Sex: Female

DRUGS (4)
  1. PREDNISONE. [Suspect]
     Active Substance: PREDNISONE
     Indication: PRODUCT USED FOR UNKNOWN INDICATION
     Route: 065
  2. METHOTREXATE. [Suspect]
     Active Substance: METHOTREXATE
     Indication: PRODUCT USED FOR UNKNOWN INDICATION
     Route: 065
  3. HUMIRA [Suspect]
     Active Substance: ADALIMUMAB
     Indication: RHEUMATOID ARTHRITIS
     Route: 058
     Dates: end: 2016
  4. CELEBREX [Suspect]
     Active Substance: CELECOXIB
     Indication: PRODUCT USED FOR UNKNOWN INDICATION
     Route: 065
     Dates: end: 2016

REACTIONS (12)
  - Vertigo [Recovered/Resolved]
  - Injection site pain [Unknown]
  - Eye discharge [Unknown]
  - Oral discharge [Unknown]
  - Fungal infection [Unknown]
  - Foaming at mouth [Unknown]
  - Oral candidiasis [Not Recovered/Not Resolved]
  - Pulmonary mass [Unknown]
  - Rhinorrhoea [Unknown]
  - Fall [Unknown]
  - Injection site bruising [Unknown]
  - Oral bacterial infection [Unknown]

NARRATIVE: CASE EVENT DATE: 2014
